FAERS Safety Report 25555612 (Version 1)
Quarter: 2025Q3

REPORT INFORMATION
  Report Type: Spontaneous
  Country: EU (occurrence: EU)
  Receive Date: 20250715
  Receipt Date: 20250715
  Transmission Date: 20251021
  Serious: Yes (Other)
  Sender: TAKEDA
  Company Number: EU-TAKEDA-2025TUS063063

PATIENT
  Age: 83 Year
  Sex: Female
  Weight: 70 kg

DRUGS (7)
  1. FEBUXOSTAT [Suspect]
     Active Substance: FEBUXOSTAT
     Indication: Gout
     Dosage: 80 MILLIGRAM, QD
     Dates: start: 20250613, end: 20250626
  2. Carvedilol Cinfa [Concomitant]
     Indication: Essential hypertension
  3. DIAZEPAM [Concomitant]
     Active Substance: DIAZEPAM
     Indication: Asthenia
     Dosage: 10 MILLIGRAM, QD
     Dates: start: 20141008
  4. Clovate [Concomitant]
     Indication: Psoriasis
     Dosage: UNK UNK, QD
     Route: 061
     Dates: start: 20180824
  5. CLOTRIMAZOLE [Concomitant]
     Active Substance: CLOTRIMAZOLE
     Indication: Fungal skin infection
     Dosage: UNK UNK, Q12H
     Route: 061
     Dates: start: 20191203
  6. FUROSEMIDE [Concomitant]
     Active Substance: FUROSEMIDE
     Indication: Ascites
  7. ETORICOXIB [Concomitant]
     Active Substance: ETORICOXIB
     Indication: Arthralgia
     Dosage: 90 MILLIGRAM, QD
     Dates: start: 20250613

REACTIONS (4)
  - Nausea [Not Recovered/Not Resolved]
  - Malaise [Not Recovered/Not Resolved]
  - Aphthous ulcer [Not Recovered/Not Resolved]
  - Abdominal distension [Not Recovered/Not Resolved]

NARRATIVE: CASE EVENT DATE: 20250614
